FAERS Safety Report 14927659 (Version 1)
Quarter: 2018Q2

REPORT INFORMATION
  Report Type: Spontaneous
  Country: US (occurrence: US)
  Receive Date: 20180523
  Receipt Date: 20180523
  Transmission Date: 20180711
  Serious: Yes (Hospitalization, Other)
  Sender: FDA-Public Use
  Company Number: US-009507513-1805USA007922

PATIENT
  Sex: Female
  Weight: 126 kg

DRUGS (3)
  1. NEXPLANON [Suspect]
     Active Substance: ETONOGESTREL
     Indication: ENDOMETRIAL DISORDER
  2. NEXPLANON [Suspect]
     Active Substance: ETONOGESTREL
     Indication: OVULATION DISORDER
     Dosage: 1 IMPLANT
     Route: 059
     Dates: start: 20180418, end: 20180513
  3. IRON (UNSPECIFIED) [Concomitant]
     Active Substance: IRON

REACTIONS (2)
  - Product use in unapproved indication [Unknown]
  - Depression suicidal [Recovered/Resolved]

NARRATIVE: CASE EVENT DATE: 2018
